FAERS Safety Report 7626580-0 (Version None)
Quarter: 2011Q3

REPORT INFORMATION
  Report Type: 
  Country: None (occurrence: None)
  Receive Date: 20110721
  Receipt Date: 20110711
  Transmission Date: 20111222
  Serious: Yes (Death)
  Sender: FDA-Public Use
  Company Number: FR-GLAXOSMITHKLINE-B0732098A

PATIENT
  Sex: Male

DRUGS (14)
  1. TRANDOLAPRIL [Concomitant]
     Indication: MYOCARDIAL ISCHAEMIA
     Dosage: 4MG PER DAY
     Route: 048
     Dates: end: 20110505
  2. ALIMTA [Suspect]
     Indication: BRONCHIAL CARCINOMA
     Dosage: 980MG CYCLIC
     Route: 042
     Dates: start: 20110426, end: 20110426
  3. PREDNISOLONE [Suspect]
     Indication: PREMEDICATION
     Dosage: 20MG THREE TIMES PER DAY
     Route: 048
     Dates: start: 20110426, end: 20110427
  4. FOLIC ACID [Suspect]
     Indication: VITAMIN SUPPLEMENTATION
     Dosage: .4MG PER DAY
     Route: 048
     Dates: start: 20110419, end: 20110511
  5. ONDANSERTRON HYDROCHLORIDE [Suspect]
     Indication: PROPHYLAXIS OF NAUSEA AND VOMITING
     Dosage: 8MG TWICE PER DAY
     Route: 048
     Dates: start: 20110426, end: 20110501
  6. BISOPROLOL FUMARATE [Concomitant]
     Indication: MYOCARDIAL ISCHAEMIA
     Dosage: 3.75MG PER DAY
     Route: 048
     Dates: end: 20110505
  7. CARBOPLATIN [Suspect]
     Indication: BRONCHIAL CARCINOMA
     Dosage: 385MG CYCLIC
     Route: 042
     Dates: start: 20110426, end: 20110426
  8. SOLU-MEDROL [Suspect]
     Indication: PREMEDICATION
     Dosage: 120MG CYCLIC
     Route: 042
     Dates: start: 20110426, end: 20110426
  9. ATORVASTATIN CALCIUM [Concomitant]
     Indication: MYOCARDIAL ISCHAEMIA
     Dosage: 1UNIT PER DAY
     Route: 048
     Dates: end: 20110524
  10. KARDEGIC [Concomitant]
     Indication: MYOCARDIAL ISCHAEMIA
     Dosage: 75MG PER DAY
     Route: 048
     Dates: end: 20110505
  11. PREVISCAN [Concomitant]
     Indication: MYOCARDIAL ISCHAEMIA
     Route: 048
     Dates: end: 20110505
  12. DODECAVIT [Concomitant]
     Indication: VITAMIN SUPPLEMENTATION
     Dosage: .5MG SINGLE DOSE
     Route: 030
     Dates: start: 20110419, end: 20110419
  13. LASIX [Concomitant]
     Indication: MYOCARDIAL ISCHAEMIA
     Dosage: 40MG PER DAY
     Route: 048
     Dates: end: 20110524
  14. XANAX [Suspect]
     Indication: ANXIETY
     Route: 048
     Dates: start: 20110426, end: 20110507

REACTIONS (4)
  - GASTROINTESTINAL NECROSIS [None]
  - DIARRHOEA [None]
  - PANCYTOPENIA [None]
  - COLITIS ISCHAEMIC [None]
